FAERS Safety Report 16551536 (Version 1)
Quarter: 2019Q3

REPORT INFORMATION
  Report Type: Spontaneous
  Country: DK (occurrence: DK)
  Receive Date: 20190710
  Receipt Date: 20190710
  Transmission Date: 20191004
  Serious: Yes (Hospitalization, Other)
  Sender: FDA-Public Use
  Company Number: DK-AMGEN-DNKSP2019106428

PATIENT
  Age: 78 Year
  Sex: Female

DRUGS (14)
  1. MACROGOL [Concomitant]
     Active Substance: POLYETHYLENE GLYCOLS
     Indication: CONSTIPATION
     Dosage: 1 DOSAGE FORM, MAXIMUM 3 TIMES DAILY, AS NECESSARY
     Route: 048
     Dates: start: 20170706
  2. PANTOPRAZOL ACTAVIS [Concomitant]
     Active Substance: PANTOPRAZOLE SODIUM
     Indication: GASTROOESOPHAGEAL REFLUX DISEASE
     Dosage: 40 MILLIGRAM, QD
     Route: 048
     Dates: start: 20180219
  3. MORFIN DAK [Concomitant]
     Active Substance: MORPHINE HYDROCHLORIDE
     Indication: PAIN
     Dosage: 10 MILLIGRAM (1 TABLET MAXIMUM 6 TIMES DAILY), AS NECESSARY
     Route: 048
     Dates: start: 20170706
  4. XGEVA [Suspect]
     Active Substance: DENOSUMAB
     Indication: BLOOD CALCIUM INCREASED
     Dosage: 120 MILLIGRAM, Q4WK
     Route: 058
     Dates: start: 20151021, end: 20181019
  5. IMOZOP [Concomitant]
     Active Substance: ZOPICLONE
     Indication: INSOMNIA
     Dosage: 7.5 MILLIGRAM, QD
     Route: 048
     Dates: start: 20170706
  6. CENTYL MED KALIUMKLORID [Concomitant]
     Active Substance: BENDROFLUMETHIAZIDE\POTASSIUM CHLORIDE
     Indication: DIURETIC THERAPY
     Dosage: 1 DOSAGE FORM (STRENGTH: 2.5 + 573 MG), QD
     Route: 048
     Dates: start: 20170825
  7. MAGNESIUM HYDROXIDE. [Concomitant]
     Active Substance: MAGNESIUM HYDROXIDE
     Indication: CONSTIPATION
     Dosage: 500 MILLIGRAM, QD
     Route: 048
     Dates: start: 20181016
  8. NASONEX [Concomitant]
     Active Substance: MOMETASONE FUROATE
     Indication: RHINORRHOEA
     Dosage: 100 MILLIGRAM (50 MICROGRAM/DOSE), QD
     Route: 045
     Dates: start: 20170706
  9. LAXOBERAL [Concomitant]
     Active Substance: SODIUM PICOSULFATE
     Indication: CONSTIPATION
     Dosage: 10 DROP (STRENGTH: 7.5 MG/ML)
     Route: 048
     Dates: start: 20180131
  10. PREDNISOLON [Concomitant]
     Active Substance: PREDNISOLONE
     Indication: ADRENOCORTICAL STEROID THERAPY
     Dosage: 12.5 MILLIGRAM, QD
     Route: 048
     Dates: start: 20180219
  11. FENTANYL. [Concomitant]
     Active Substance: FENTANYL
     Indication: PAIN
     Dosage: 1 DOSAGE FORM (STRENGTH: 50 MICROGRAM/HOUR), UNK
     Route: 062
     Dates: start: 20170706
  12. HJERTEMAGNYL [ACETYLSALICYLIC ACID] [Concomitant]
     Active Substance: ASPIRIN
     Indication: THROMBOSIS PROPHYLAXIS
     Dosage: 75 MILLIGRAM, QD
     Route: 048
     Dates: start: 20170706
  13. KALEORID [Concomitant]
     Active Substance: POTASSIUM CHLORIDE
     Indication: BLOOD POTASSIUM DECREASED
     Dosage: 3000 MILLIGRAM (STRENGTH: 750 MG), QD
     Route: 048
     Dates: start: 20190419
  14. ATROVENT [Concomitant]
     Active Substance: IPRATROPIUM BROMIDE
     Indication: RHINORRHOEA
     Dosage: 6 DOSAGE FORM (21 MICROGRAMS/DOSE), QD
     Route: 045
     Dates: start: 20170706

REACTIONS (3)
  - Sequestrectomy [Recovered/Resolved]
  - Exostosis of jaw [Recovered/Resolved]
  - Osteonecrosis of jaw [Recovered/Resolved]

NARRATIVE: CASE EVENT DATE: 2018
